FAERS Safety Report 6295991-0 (Version None)
Quarter: 2009Q3

REPORT INFORMATION
  Report Type: 
  Country: None (occurrence: None)
  Receive Date: 20090804
  Receipt Date: 20090723
  Transmission Date: 20100115
  Serious: Yes (Other)
  Sender: FDA-Public Use
  Company Number: AU-PFIZER INC-2009245067

PATIENT
  Age: 50 Year

DRUGS (2)
  1. ZELDOX [Suspect]
     Dosage: UNK
  2. OLANZAPINE [Concomitant]

REACTIONS (1)
  - PHARYNGEAL OEDEMA [None]
